FAERS Safety Report 7137741-1 (Version None)
Quarter: 2010Q4

REPORT INFORMATION
  Report Type: 
  Country: None (occurrence: None)
  Receive Date: 20101206
  Receipt Date: 20101129
  Transmission Date: 20110411
  Serious: Yes (Other)
  Sender: FDA-Public Use
  Company Number: PHHY2010US80749

PATIENT
  Sex: Female

DRUGS (2)
  1. MIACALCIN [Suspect]
  2. MIACALCIN [Suspect]
     Route: 045

REACTIONS (1)
  - LUMBAR VERTEBRAL FRACTURE [None]
